FAERS Safety Report 10166033 (Version 1)
Quarter: 2014Q2

REPORT INFORMATION
  Report Type: Report from Study
  Country: GB (occurrence: GB)
  Receive Date: 20140511
  Receipt Date: 20140511
  Transmission Date: 20141212
  Serious: Yes (Hospitalization)
  Sender: FDA-Public Use
  Company Number: GB-AMGEN INC.-GBRCT2014033700

PATIENT
  Age: 46 Year
  Sex: Male
  Weight: 131 kg

DRUGS (10)
  1. ETANERCEPT [Suspect]
     Indication: PRODUCT USED FOR UNKNOWN INDICATION
     Dosage: 50 MG, QWK
     Route: 065
     Dates: start: 20120203
  2. FUROSEMIDE [Concomitant]
     Dosage: UNK
     Dates: start: 20110817
  3. NAPROXEN [Concomitant]
     Dosage: UNK
     Dates: start: 20110817
  4. RAMIPRIL [Concomitant]
     Dosage: UNK
     Dates: start: 20110817
  5. ASPIRIN [Concomitant]
     Dosage: UNK
     Dates: start: 20110817
  6. OMEPRAZOLE [Concomitant]
     Dosage: UNK
     Dates: start: 20110817
  7. AMLODIPINE [Concomitant]
     Dosage: UNK
     Dates: start: 20110817
  8. FLUVASTATIN [Concomitant]
     Dosage: UNK
     Dates: start: 20070701
  9. ESCITALOPRAM [Concomitant]
     Dosage: UNK
     Dates: start: 20000701
  10. NEORAL [Concomitant]
     Dosage: VARIED FROM 300MG TO 50MG DAILY
     Dates: start: 20130311

REACTIONS (1)
  - Psoriasis [Recovered/Resolved]
